FAERS Safety Report 14769941 (Version 2)
Quarter: 2018Q3

REPORT INFORMATION
  Report Type: Spontaneous
  Country: DE (occurrence: DE)
  Receive Date: 20180417
  Receipt Date: 20180712
  Transmission Date: 20181010
  Serious: Yes (Life-Threatening, Hospitalization, Other)
  Sender: FDA-Public Use
  Company Number: DE-SA-2018SA106833

PATIENT
  Sex: Female

DRUGS (37)
  1. LINEZOLID. [Concomitant]
     Active Substance: LINEZOLID
     Dosage: 600 MG, BID
     Route: 042
     Dates: start: 20180409
  2. FRESUBIN ENERGY FIBRE [Concomitant]
     Dosage: 1.5 UNK
     Route: 050
  3. MAGNESIUM [Concomitant]
     Active Substance: MAGNESIUM
     Dosage: 2 G, QD
  4. NADROPARIN [NADROPARIN CALCIUM] [Concomitant]
     Dosage: 0.4 ML, QD
     Route: 058
     Dates: start: 20180409
  5. SUFENTANIL [Concomitant]
     Active Substance: SUFENTANIL
     Dosage: 250 MG CONTINUOUSLY
  6. CLONIDINE. [Concomitant]
     Active Substance: CLONIDINE
     Dosage: 1.5 MG CONTINUOUSLY
  7. MEROPENEM. [Concomitant]
     Active Substance: MEROPENEM
     Dosage: 2 UNK
     Route: 041
     Dates: start: 20180409
  8. DELTAJONIN [Concomitant]
     Active Substance: CALCIUM CHLORIDE\MAGNESIUM CHLORIDE\POTASSIUM CHLORIDE\SODIUM ACETATE\SODIUM CHLORIDE
     Dosage: 100 ML/H CONTINUOUSLY
  9. GLUCOSE [Concomitant]
     Active Substance: DEXTROSE
     Dosage: 50 MG
     Route: 042
  10. PANTOPRAZOLE [Concomitant]
     Active Substance: PANTOPRAZOLE
     Dosage: 40 MG, QD
  11. CALCIUM GLUCONATE. [Concomitant]
     Active Substance: CALCIUM GLUCONATE
     Dosage: UNK
     Dates: start: 20180409, end: 20180409
  12. CALCIUM GLUCONATE. [Concomitant]
     Active Substance: CALCIUM GLUCONATE
     Dosage: UNK
  13. SODIUM CHLORIDE. [Concomitant]
     Active Substance: SODIUM CHLORIDE
     Dosage: 7.7 MMOL CONTINUOUSLY
  14. PANTOPRAZOLE [Concomitant]
     Active Substance: PANTOPRAZOLE
     Dosage: 40 MG, QD
     Route: 042
  15. METAMIZOL [METAMIZOLE] [Concomitant]
     Dosage: 1 G, QID
     Route: 042
     Dates: start: 20180409
  16. CLARITHROMYCIN. [Concomitant]
     Active Substance: CLARITHROMYCIN
     Dosage: UNK, BID
     Route: 041
     Dates: start: 20180409, end: 20180409
  17. MEROPENEM. [Concomitant]
     Active Substance: MEROPENEM
     Dosage: 2 G
     Dates: start: 20180408, end: 20180408
  18. GLUCOSE [Concomitant]
     Active Substance: DEXTROSE
     Dosage: 15 MG
  19. NACL [Concomitant]
     Active Substance: SODIUM CHLORIDE
     Dosage: 50 ML CONTINUOUS
  20. NADROPARIN [Concomitant]
     Active Substance: NADROPARIN
     Dosage: 0.4 ML, QD
     Route: 058
  21. LEVOSIMENDAN [Concomitant]
     Active Substance: LEVOSIMENDAN
     Dosage: 2.5 MG
  22. SUFENTANIL [SUFENTANIL CITRATE] [Concomitant]
     Dosage: 250 UG CONTINUOUSLY
     Route: 042
  23. POTASSIUM CHLORIDE 7.45% [Concomitant]
     Dosage: UNK
  24. DOBUTAMINE [Concomitant]
     Active Substance: DOBUTAMINE\DOBUTAMINE HYDROCHLORIDE
     Dosage: 250 MG
  25. NORADRENALINE [NOREPINEPHRINE] [Concomitant]
     Dosage: 50 MG
  26. DISODIUM PHOSPHATE [Concomitant]
     Dosage: UNK
  27. METAMIZOL [METAMIZOLE] [Concomitant]
     Dosage: 1 G, QD
     Route: 042
  28. CLARITHROMYCIN. [Concomitant]
     Active Substance: CLARITHROMYCIN
     Dosage: UNK UNK, QD
     Route: 042
     Dates: start: 20180408, end: 20180408
  29. NORADRENALINE [NOREPINEPHRINE] [Concomitant]
     Dosage: 5 MG
  30. PHYTOMENADIONE [Concomitant]
     Active Substance: PHYTONADIONE
     Dosage: UNK
     Route: 042
  31. LEMTRADA [Suspect]
     Active Substance: ALEMTUZUMAB
     Indication: MULTIPLE SCLEROSIS
     Dosage: 12 MG,UNK
     Route: 041
     Dates: start: 201602, end: 201602
  32. MELPERON [Concomitant]
     Active Substance: MELPERONE
     Dosage: 25 MG, 2 TIMES IN EVENING
  33. METAMIZOL [METAMIZOLE] [Concomitant]
     Dosage: 1 G
     Dates: start: 20180408, end: 20180408
  34. MIDAZOLAM [Concomitant]
     Active Substance: MIDAZOLAM HYDROCHLORIDE
     Dosage: 250 MG, QD
  35. LINEZOLID. [Concomitant]
     Active Substance: LINEZOLID
     Dosage: 600 MG, 1X
     Dates: start: 20180408, end: 20180408
  36. DELTAJONIN [Concomitant]
     Active Substance: CALCIUM CHLORIDE\MAGNESIUM CHLORIDE\POTASSIUM CHLORIDE\SODIUM ACETATE\SODIUM CHLORIDE
     Dosage: 500 MG, PRN
  37. BISACODYL. [Concomitant]
     Active Substance: BISACODYL
     Dosage: 10 MG, 1X

REACTIONS (72)
  - Resuscitation [Unknown]
  - Respiratory failure [Unknown]
  - Respiratory acidosis [Unknown]
  - Haemoglobin decreased [Not Recovered/Not Resolved]
  - Poikilocytosis [Not Recovered/Not Resolved]
  - Free haemoglobin [Not Recovered/Not Resolved]
  - Neutrophil count increased [Not Recovered/Not Resolved]
  - Prothrombin time prolonged [Recovered/Resolved with Sequelae]
  - Transferrin decreased [Not Recovered/Not Resolved]
  - Neutrophil chemotaxis abnormal [Not Recovered/Not Resolved]
  - Pleural effusion [Unknown]
  - Cough [Unknown]
  - Decubitus ulcer [Unknown]
  - Hypotonia [Unknown]
  - Blood lactic acid increased [Unknown]
  - Blood albumin decreased [Not Recovered/Not Resolved]
  - Aspartate aminotransferase increased [Not Recovered/Not Resolved]
  - N-terminal prohormone brain natriuretic peptide increased [Not Recovered/Not Resolved]
  - Red blood cell count decreased [Not Recovered/Not Resolved]
  - Haptoglobin increased [Not Recovered/Not Resolved]
  - Blood zinc abnormal [Not Recovered/Not Resolved]
  - Cardiac failure [Unknown]
  - Enterococcus test positive [Unknown]
  - Blood urea increased [Not Recovered/Not Resolved]
  - Blood lactate dehydrogenase increased [Not Recovered/Not Resolved]
  - Platelet count decreased [Not Recovered/Not Resolved]
  - Blood phosphorus increased [Not Recovered/Not Resolved]
  - Procalcitonin increased [Not Recovered/Not Resolved]
  - Haematocrit decreased [Not Recovered/Not Resolved]
  - Mean cell haemoglobin concentration decreased [Not Recovered/Not Resolved]
  - International normalised ratio increased [Recovered/Resolved]
  - Cardiomyopathy [Unknown]
  - Paralysis [Unknown]
  - Hypokalaemia [Unknown]
  - Mean cell volume decreased [Not Recovered/Not Resolved]
  - Blood test abnormal [Not Recovered/Not Resolved]
  - Anisocytosis [Not Recovered/Not Resolved]
  - Blood thyroid stimulating hormone decreased [Not Recovered/Not Resolved]
  - Neutrophil count abnormal [Not Recovered/Not Resolved]
  - Acute respiratory distress syndrome [Unknown]
  - Antibody test abnormal [Unknown]
  - Tri-iodothyronine free decreased [Unknown]
  - Lung infiltration [Unknown]
  - Blood bilirubin increased [Not Recovered/Not Resolved]
  - Alanine aminotransferase increased [Not Recovered/Not Resolved]
  - Neutrophil function disorder [Not Recovered/Not Resolved]
  - Septic shock [Unknown]
  - Multiple organ dysfunction syndrome [Unknown]
  - Polyneuropathy [Unknown]
  - Gamma-glutamyltransferase increased [Not Recovered/Not Resolved]
  - Mean cell haemoglobin decreased [Not Recovered/Not Resolved]
  - Myoglobin blood increased [Not Recovered/Not Resolved]
  - Procalcitonin increased [Not Recovered/Not Resolved]
  - Coronary artery insufficiency [Unknown]
  - Influenza [Unknown]
  - Acute kidney injury [Unknown]
  - Blood creatinine increased [Not Recovered/Not Resolved]
  - White blood cell disorder [Not Recovered/Not Resolved]
  - C-reactive protein increased [Not Recovered/Not Resolved]
  - Eosinophil count increased [Not Recovered/Not Resolved]
  - Blood cholinesterase decreased [Not Recovered/Not Resolved]
  - Lipase increased [Not Recovered/Not Resolved]
  - Antithrombin III decreased [Not Recovered/Not Resolved]
  - Hypoxia [Unknown]
  - Ascites [Unknown]
  - Troponin I increased [Not Recovered/Not Resolved]
  - White blood cell count increased [Not Recovered/Not Resolved]
  - Lymphocyte percentage decreased [Not Recovered/Not Resolved]
  - Monocyte percentage decreased [Not Recovered/Not Resolved]
  - Activated partial thromboplastin time prolonged [Not Recovered/Not Resolved]
  - Blood cholinesterase decreased [Not Recovered/Not Resolved]
  - Tri-iodothyronine free decreased [Not Recovered/Not Resolved]

NARRATIVE: CASE EVENT DATE: 2018
